FAERS Safety Report 21227068 (Version 1)
Quarter: 2022Q3

REPORT INFORMATION
  Report Type: Other
  Country: US (occurrence: None)
  Receive Date: 20220818
  Receipt Date: 20220818
  Transmission Date: 20221026
  Serious: No
  Sender: FDA-Public Use
  Company Number: US-ROCHE-3158594

PATIENT
  Sex: Female

DRUGS (3)
  1. OCREVUS [Suspect]
     Active Substance: OCRELIZUMAB
     Indication: Multiple sclerosis
     Dosage: DATE OF TREATMENT: 17/JUN/2021, 17/FEB/2022??300MG/10ML 600MG/ML IV 40MG/ML PER HOUR INCREASING BY 4
     Route: 042
  2. MODAFINIL [Concomitant]
     Active Substance: MODAFINIL
  3. CYCLOBENZAPRINE [Concomitant]
     Active Substance: CYCLOBENZAPRINE

REACTIONS (3)
  - JC polyomavirus test positive [Unknown]
  - Fatigue [Unknown]
  - Basophil count increased [Unknown]
